FAERS Safety Report 6720948-2 (Version None)
Quarter: 2010Q2

REPORT INFORMATION
  Report Type: 
  Country: None (occurrence: None)
  Receive Date: 20100512
  Receipt Date: 20100503
  Transmission Date: 20101027
  Serious: Yes (Other)
  Sender: FDA-Public Use
  Company Number: US-JNJFOC-20100501128

PATIENT
  Age: 52 Year
  Sex: Female

DRUGS (4)
  1. NUCYNTA [Suspect]
     Indication: FIBROMYALGIA
     Route: 048
  2. CYMBALTA [Suspect]
     Indication: FIBROMYALGIA
     Route: 048
  3. LYRICA [Suspect]
     Indication: FIBROMYALGIA
     Route: 048
  4. SOMA [Suspect]
     Indication: FIBROMYALGIA
     Route: 048

REACTIONS (4)
  - HEADACHE [None]
  - MOOD SWINGS [None]
  - NAUSEA [None]
  - SEROTONIN SYNDROME [None]
